FAERS Safety Report 16126657 (Version 3)
Quarter: 2019Q2

REPORT INFORMATION
  Report Type: Spontaneous
  Country: JP (occurrence: JP)
  Receive Date: 20190328
  Receipt Date: 20190627
  Transmission Date: 20190711
  Serious: Yes (Death, Hospitalization)
  Sender: FDA-Public Use
  Company Number: JP-ROCHE-2291487

PATIENT
  Age: 77 Year
  Sex: Male
  Weight: 67 kg

DRUGS (18)
  1. XELODA [Suspect]
     Active Substance: CAPECITABINE
     Indication: COLON CANCER
     Route: 048
     Dates: start: 20190225, end: 20190311
  2. ELPLAT [Suspect]
     Active Substance: OXALIPLATIN
     Indication: COLON CANCER
     Route: 041
     Dates: start: 20190225, end: 20190314
  3. ORGADRONE [DEXAMETHASONE SODIUM PHOSPHATE] [Concomitant]
     Route: 041
     Dates: start: 20190225, end: 20190225
  4. POLARAMINE [Concomitant]
     Active Substance: DEXCHLORPHENIRAMINE MALEATE
     Route: 041
     Dates: start: 20190225, end: 20190225
  5. BASEN [VOGLIBOSE] [Concomitant]
     Route: 065
  6. FUROSEMIDE. [Concomitant]
     Active Substance: FUROSEMIDE
     Route: 065
     Dates: start: 20190228
  7. ALOXI [Concomitant]
     Active Substance: PALONOSETRON HYDROCHLORIDE
     Route: 041
     Dates: start: 20190225, end: 20190225
  8. AVASTIN [Suspect]
     Active Substance: BEVACIZUMAB
     Indication: COLON CANCER
     Route: 041
     Dates: start: 20190225, end: 20190225
  9. HERBESSER [Concomitant]
     Active Substance: DILTIAZEM HYDROCHLORIDE
     Route: 048
  10. EMEND [Concomitant]
     Active Substance: APREPITANT
     Route: 048
     Dates: start: 20190225, end: 20190225
  11. EMEND [Concomitant]
     Active Substance: APREPITANT
     Route: 048
     Dates: start: 20190225, end: 20190225
  12. ECARD [Concomitant]
     Active Substance: CANDESARTAN CILEXETIL\HYDROCHLOROTHIAZIDE
     Route: 048
  13. ESOMEPRAZOLE. [Concomitant]
     Active Substance: ESOMEPRAZOLE MAGNESIUM
     Route: 048
  14. XARELTO [Concomitant]
     Active Substance: RIVAROXABAN
     Route: 065
  15. TRAZENTA [Concomitant]
     Active Substance: LINAGLIPTIN
     Route: 065
  16. SPIRONOLACTONE. [Concomitant]
     Active Substance: SPIRONOLACTONE
     Route: 065
     Dates: start: 20190228
  17. SPIRIVA [Concomitant]
     Active Substance: TIOTROPIUM BROMIDE MONOHYDRATE
     Route: 055
  18. RELVAR [Concomitant]
     Active Substance: FLUTICASONE FUROATE\VILANTEROL TRIFENATATE
     Route: 055

REACTIONS (6)
  - Vomiting [Fatal]
  - Enterocolitis [Fatal]
  - Large intestine perforation [Fatal]
  - Stomatitis [Not Recovered/Not Resolved]
  - Diarrhoea [Fatal]
  - Campylobacter infection [Unknown]

NARRATIVE: CASE EVENT DATE: 20190311
